FAERS Safety Report 10086182 (Version 1)
Quarter: 2014Q2

REPORT INFORMATION
  Report Type: Spontaneous
  Country: US (occurrence: None)
  Receive Date: 20140417
  Receipt Date: 20140417
  Transmission Date: 20141212
  Serious: No
  Sender: FDA-Public Use
  Company Number: None

PATIENT
  Sex: 0

DRUGS (1)
  1. APLISOL [Suspect]
     Indication: TUBERCULOSIS
     Route: 023
     Dates: start: 20140326, end: 20140410

REACTIONS (2)
  - Injection site erythema [None]
  - Pruritus [None]
